FAERS Safety Report 19306087 (Version 3)
Quarter: 2021Q4

REPORT INFORMATION
  Report Type: Spontaneous
  Country: GR (occurrence: GR)
  Receive Date: 20210526
  Receipt Date: 20211014
  Transmission Date: 20220304
  Serious: Yes (Other)
  Sender: FDA-Public Use
  Company Number: GR-MLMSERVICE-20210511-2878207-1

PATIENT
  Age: 65 Year
  Sex: Male

DRUGS (1)
  1. FLUCONAZOLE [Suspect]
     Active Substance: FLUCONAZOLE
     Indication: Oral candidiasis
     Dosage: 100 MG, DAILY

REACTIONS (2)
  - Hypersensitivity [Recovered/Resolved]
  - Generalised bullous fixed drug eruption [Recovered/Resolved]
